FAERS Safety Report 17303250 (Version 1)
Quarter: 2020Q1

REPORT INFORMATION
  Report Type: Spontaneous
  Country: UG (occurrence: UG)
  Receive Date: 20200122
  Receipt Date: 20200122
  Transmission Date: 20200409
  Serious: Yes (Other)
  Sender: FDA-Public Use
  Company Number: UG-009507513-2001UGA006651

PATIENT
  Weight: 2 kg

DRUGS (1)
  1. IMPLANON NXT [Suspect]
     Active Substance: ETONOGESTREL
     Dosage: UNK
     Route: 064

REACTIONS (2)
  - Premature baby [Unknown]
  - Foetal exposure during pregnancy [Recovered/Resolved]
